FAERS Safety Report 9284430 (Version 2)
Quarter: 2013Q2

REPORT INFORMATION
  Report Type: Spontaneous
  Country: US (occurrence: US)
  Receive Date: 20130510
  Receipt Date: 20130523
  Transmission Date: 20140414
  Serious: Yes (Other)
  Sender: FDA-Public Use
  Company Number: US-ROXANE LABORATORIES, INC.-2013-RO-00709RO

PATIENT
  Age: 33 Year
  Sex: Female

DRUGS (2)
  1. QUETIAPINE FUMARATE [Suspect]
     Dosage: 200 MG
     Route: 048
     Dates: start: 20130427, end: 20130427
  2. QUETIAPINE FUMARATE [Suspect]
     Dosage: 400 MG
     Route: 048
     Dates: start: 20130428, end: 20130428

REACTIONS (4)
  - Tachycardia [Recovered/Resolved]
  - Dizziness [Recovered/Resolved]
  - Agitation [Recovered/Resolved]
  - Aggression [Recovered/Resolved]
